FAERS Safety Report 5614160-8 (Version None)
Quarter: 2008Q1

REPORT INFORMATION
  Report Type: 
  Country: None (occurrence: None)
  Receive Date: 20080205
  Receipt Date: 20080131
  Transmission Date: 20080703
  Serious: Yes (Other)
  Sender: FDA-Public Use
  Company Number: A0706670A

PATIENT
  Age: 55 Year
  Sex: Female

DRUGS (6)
  1. LAMICTAL [Suspect]
     Indication: DRUG USE FOR UNKNOWN INDICATION
     Dosage: 25MG PER DAY
     Route: 048
     Dates: start: 20070301, end: 20070301
  2. VALIUM [Concomitant]
  3. CELEXA [Concomitant]
  4. TOPAMAX [Concomitant]
  5. FIORICET [Concomitant]
  6. TYLENOL W/ CODEINE NO. 4 [Concomitant]

REACTIONS (4)
  - OEDEMA PERIPHERAL [None]
  - PRURITUS [None]
  - SEPSIS [None]
  - WOUND COMPLICATION [None]
